FAERS Safety Report 19004032 (Version 1)
Quarter: 2021Q1

REPORT INFORMATION
  Report Type: Report from Study
  Country: None (occurrence: DO)
  Receive Date: 20210312
  Receipt Date: 20210312
  Transmission Date: 20210420
  Serious: Yes (Other)
  Sender: FDA-Public Use
  Company Number: DO-ABBVIE-21K-279-3812480-00

PATIENT
  Age: 67 Year
  Sex: Female
  Weight: 64 kg

DRUGS (2)
  1. HUMIRA [Suspect]
     Active Substance: ADALIMUMAB
     Indication: RHEUMATOID ARTHRITIS
     Route: 058
  2. HUMIRA [Suspect]
     Active Substance: ADALIMUMAB
     Indication: RHEUMATOID ARTHRITIS
     Route: 058
     Dates: start: 20120506

REACTIONS (5)
  - Tooth fracture [Recovering/Resolving]
  - Weight increased [Recovering/Resolving]
  - Tooth injury [Recovering/Resolving]
  - Speech disorder [Unknown]
  - Bruxism [Unknown]

NARRATIVE: CASE EVENT DATE: 20210310
